FAERS Safety Report 25776743 (Version 1)
Quarter: 2025Q3

REPORT INFORMATION
  Report Type: Spontaneous
  Country: US (occurrence: US)
  Receive Date: 20250909
  Receipt Date: 20250909
  Transmission Date: 20251021
  Serious: No
  Sender: DOMPE FARMACEUTICI
  Company Number: US-FARMAPROD-202503-0904

PATIENT
  Sex: Male

DRUGS (31)
  1. OXERVATE [Suspect]
     Active Substance: CENEGERMIN-BKBJ
     Indication: Neurotrophic keratopathy
     Route: 047
     Dates: start: 20250313
  2. CALCIUM CITRATE [Concomitant]
     Active Substance: CALCIUM CITRATE
  3. METHAZOLAMIDE [Concomitant]
     Active Substance: METHAZOLAMIDE
  4. VALACYCLOVIR [Concomitant]
     Active Substance: VALACYCLOVIR HYDROCHLORIDE
  5. BRIMONIDINE TARTRATE [Concomitant]
     Active Substance: BRIMONIDINE TARTRATE
  6. LOTEMAX SM [Concomitant]
     Active Substance: LOTEPREDNOL ETABONATE
  7. DORZOLAMIDE\TIMOLOL [Concomitant]
     Active Substance: DORZOLAMIDE\TIMOLOL
  8. OFLOXACIN [Concomitant]
     Active Substance: OFLOXACIN
  9. METHOCARBAMOL [Concomitant]
     Active Substance: METHOCARBAMOL
  10. CLONAZEPAM [Concomitant]
     Active Substance: CLONAZEPAM
  11. MULTIVITAMIN 50 PLUS [Concomitant]
  12. ALPHA LIPOIC ACID [Concomitant]
     Active Substance: .ALPHA.-LIPOIC ACID
  13. FISH OIL [Concomitant]
     Active Substance: FISH OIL
  14. THERALITH XR [Concomitant]
  15. ROPINIROLE HYDROCHLORIDE [Concomitant]
     Active Substance: ROPINIROLE HYDROCHLORIDE
  16. LATANOPROST [Concomitant]
     Active Substance: LATANOPROST
  17. VITAMIN B12 [Concomitant]
     Active Substance: CYANOCOBALAMIN
  18. FINASTERIDE [Concomitant]
     Active Substance: FINASTERIDE
  19. ACETAMINOPHEN [Concomitant]
     Active Substance: ACETAMINOPHEN
  20. TAMSULOSIN HYDROCHLORIDE [Concomitant]
     Active Substance: TAMSULOSIN HYDROCHLORIDE
  21. HYDROXYCHLOROQUINE SULFATE [Concomitant]
     Active Substance: HYDROXYCHLOROQUINE SULFATE
  22. MECLIZINE HYDROCHLORIDE [Concomitant]
     Active Substance: MECLIZINE HYDROCHLORIDE
  23. COENZYME Q10 [Concomitant]
     Active Substance: DIETARY SUPPLEMENT\UBIDECARENONE
  24. VITAMIN D3 [Concomitant]
     Active Substance: CHOLECALCIFEROL
  25. NETTLE KAISE [Concomitant]
  26. NEUROFLEX [Concomitant]
     Active Substance: CAMPHOR, (-)-\MENTHOL, (+)-
  27. CATAPLEX B SUPPLEMENT [Concomitant]
  28. GLUCOSAMINE-CHONDROTIN [Concomitant]
  29. CATAPLEX B12 [Concomitant]
  30. NAC [Concomitant]
  31. INA [Concomitant]

REACTIONS (6)
  - Eye infection [Unknown]
  - Arcus lipoides [Unknown]
  - Ulcerative keratitis [Unknown]
  - Eyelid margin crusting [Recovering/Resolving]
  - Eye pain [Not Recovered/Not Resolved]
  - Ocular hyperaemia [Recovering/Resolving]
